FAERS Safety Report 6417580-7 (Version None)
Quarter: 2009Q4

REPORT INFORMATION
  Report Type: 
  Country: None (occurrence: None)
  Receive Date: 20091028
  Receipt Date: 20091020
  Transmission Date: 20100525
  Serious: Yes (Hospitalization)
  Sender: FDA-Public Use
  Company Number: SK-ROCHE-663517

PATIENT
  Sex: Female

DRUGS (8)
  1. PEG-INTERFERON ALFA 2A (RO 25-8310) [Suspect]
     Route: 058
     Dates: start: 20090522, end: 20090728
  2. PEG-INTERFERON ALFA 2A (RO 25-8310) [Suspect]
     Route: 058
     Dates: start: 20090805, end: 20091006
  3. RIBAVIRIN [Suspect]
     Route: 048
     Dates: start: 20090519, end: 20091008
  4. RIBAVIRIN [Suspect]
     Route: 048
     Dates: start: 20091009, end: 20091013
  5. ELTROMBOPAG [Suspect]
     Indication: THROMBOCYTOPENIA
     Route: 048
     Dates: start: 20090421, end: 20090504
  6. ELTROMBOPAG [Suspect]
     Route: 048
     Dates: start: 20090505, end: 20090519
  7. BLINDED ELTROMBOPAG [Suspect]
     Indication: THROMBOCYTOPENIA
     Route: 048
     Dates: start: 20090520, end: 20090615
  8. BLINDED ELTROMBOPAG [Suspect]
     Route: 048
     Dates: start: 20090616, end: 20091013

REACTIONS (1)
  - PLEURISY [None]
